FAERS Safety Report 9543179 (Version 1)
Quarter: 2013Q3

REPORT INFORMATION
  Report Type: Spontaneous
  Country: US (occurrence: US)
  Receive Date: 20130923
  Receipt Date: 20130923
  Transmission Date: 20140515
  Serious: No
  Sender: FDA-Public Use
  Company Number: US-PURDUE-USA-2012-0093535

PATIENT
  Age: 43 Year
  Sex: Female
  Weight: 72.56 kg

DRUGS (12)
  1. DILAUDID TABLET [Suspect]
     Indication: PAIN
     Dosage: UNK
     Route: 048
     Dates: start: 201112, end: 201112
  2. ATIVAN [Concomitant]
     Indication: SLEEP DISORDER
     Dosage: UNK
  3. BENADRYL                           /00000402/ [Concomitant]
     Indication: SLEEP DISORDER
     Dosage: UNK
  4. CETIRIZINE W/PSEUDOEPHEDRINE [Concomitant]
     Indication: HYPERSENSITIVITY
     Dosage: UNK
  5. OMEPRAZOLE [Concomitant]
     Indication: DYSPEPSIA
     Dosage: UNK
  6. TYLENOL EXTRA STRENGTH [Concomitant]
     Indication: PSORIATIC ARTHROPATHY
     Dosage: UNK
  7. HERCEPTIN [Concomitant]
     Indication: BREAST CANCER
     Dosage: UNK, EVERY THREE WEEKS
     Route: 042
     Dates: start: 201112
  8. CLOBETASOL [Concomitant]
     Indication: PSORIASIS
     Dosage: UNK
     Route: 061
     Dates: start: 2012
  9. TAXOTERE [Concomitant]
     Indication: BREAST CANCER
     Dosage: UNK
     Dates: start: 201112
  10. HUMIRA [Concomitant]
     Indication: PSORIATIC ARTHROPATHY
     Dosage: 40 MG, EVERY 3 WEEKS
     Route: 065
  11. HUMIRA [Concomitant]
     Indication: PSORIASIS
  12. CARBOPLATIN [Concomitant]
     Indication: BREAST CANCER
     Dosage: UNK
     Dates: start: 201112

REACTIONS (1)
  - Constipation [Recovered/Resolved]
